FAERS Safety Report 4468944-2 (Version None)
Quarter: 2004Q4

REPORT INFORMATION
  Report Type: 
  Country: None (occurrence: None)
  Receive Date: 20041005
  Receipt Date: 20040921
  Transmission Date: 20050328
  Serious: Yes (Hospitalization)
  Sender: FDA-Public Use
  Company Number: A02200402832

PATIENT
  Age: 77 Year
  Sex: Male

DRUGS (10)
  1. ELOXATIN [Suspect]
     Indication: COLON CANCER
     Dosage: INTRAVENOUS NOS
     Route: 042
     Dates: start: 20040527, end: 20040527
  2. ELOXATIN [Suspect]
     Indication: METASTASES TO LIVER
     Dosage: INTRAVENOUS NOS
     Route: 042
     Dates: start: 20040527, end: 20040527
  3. FLUOROURACIL [Suspect]
     Indication: COLON CANCER
     Dosage: INTRAVENOUS NOS
     Route: 042
     Dates: start: 20040527, end: 20040528
  4. FLUOROURACIL [Suspect]
     Indication: METASTASES TO LIVER
     Dosage: INTRAVENOUS NOS
     Route: 042
     Dates: start: 20040527, end: 20040528
  5. LEUCOVORIN CALCIUM [Concomitant]
  6. CALDINE (LACIDIPINE) [Concomitant]
  7. STAGID (METFORMIN EMBONATE) [Concomitant]
  8. ZYLORIC (ALLOPURINOL) [Concomitant]
  9. CHOLESTEROL-TRIGLYCERIDE REDUCER NOS [Concomitant]
  10. TRINITRIN (GLYCERYL TRINITRATE) [Concomitant]

REACTIONS (6)
  - ACUTE MYOCARDIAL INFARCTION [None]
  - ACUTE PULMONARY OEDEMA [None]
  - GASTRITIS HAEMORRHAGIC [None]
  - HAEMATEMESIS [None]
  - MYOCARDIAL ISCHAEMIA [None]
  - OESOPHAGEAL ULCER [None]
